FAERS Safety Report 18627706 (Version 1)
Quarter: 2020Q4

REPORT INFORMATION
  Report Type: Spontaneous
  Country: US (occurrence: US)
  Receive Date: 20201216
  Receipt Date: 20201216
  Transmission Date: 20210114
  Serious: Yes (Disabling)
  Sender: FDA-Public Use
  Company Number: None

PATIENT
  Age: 52 Year
  Sex: Female
  Weight: 60.75 kg

DRUGS (7)
  1. CYMBALTA [Concomitant]
     Active Substance: DULOXETINE HYDROCHLORIDE
  2. TENS [Concomitant]
  3. VITAMIN D [Concomitant]
     Active Substance: VITAMIN D NOS
  4. COMPOUNDED T3/T4/ESTROGEN/PROGESTERONE [Concomitant]
  5. OCREVUS [Suspect]
     Active Substance: OCRELIZUMAB
     Indication: MULTIPLE SCLEROSIS
     Dosage: ?          QUANTITY:2 INTUSION;OTHER FREQUENCY:EVERY 6 MONTHS;?
     Route: 042
     Dates: start: 20200722, end: 20200805
  6. MULTIVITAMIN [Concomitant]
     Active Substance: VITAMINS
  7. CABERGOLINE. [Concomitant]
     Active Substance: CABERGOLINE

REACTIONS (11)
  - Lethargy [None]
  - Band sensation [None]
  - Erythema [None]
  - Asthenia [None]
  - Fatigue [None]
  - Neuropathy peripheral [None]
  - Pruritus [None]
  - Tinnitus [None]
  - Gait inability [None]
  - Quality of life decreased [None]
  - Muscle atrophy [None]

NARRATIVE: CASE EVENT DATE: 20200819
